FAERS Safety Report 5985922-2 (Version None)
Quarter: 2008Q4

REPORT INFORMATION
  Report Type: 
  Country: None (occurrence: None)
  Receive Date: 20081205
  Receipt Date: 20081205
  Transmission Date: 20090506
  Serious: Yes (Death)
  Sender: FDA-Public Use
  Company Number: None

PATIENT
  Age: 72 Year
  Sex: Male
  Weight: 78.8 kg

DRUGS (10)
  1. XIGRIS [Suspect]
     Indication: CEREBROVASCULAR ACCIDENT
     Dosage: 10MCG/KG, X1, IV
     Route: 042
  2. LOVASTATIN [Concomitant]
  3. ASPIRIN [Concomitant]
  4. NICODERM CQ [Concomitant]
  5. SIMVASTATIN [Concomitant]
  6. ACETAMINOPHEN [Concomitant]
  7. MULTI-VITAMIN [Concomitant]
  8. NYSTATIN [Concomitant]
  9. MANNITOL [Concomitant]
  10. HEPARIN [Concomitant]

REACTIONS (7)
  - BRAIN HERNIATION [None]
  - BRAIN OEDEMA [None]
  - CONDITION AGGRAVATED [None]
  - GENERAL PHYSICAL HEALTH DETERIORATION [None]
  - PYREXIA [None]
  - UNRESPONSIVE TO STIMULI [None]
  - WHITE BLOOD CELL COUNT INCREASED [None]
